FAERS Safety Report 6031917-2 (Version None)
Quarter: 2008Q4

REPORT INFORMATION
  Report Type: 
  Country: None (occurrence: None)
  Receive Date: 20081224
  Receipt Date: 20071121
  Transmission Date: 20090506
  Serious: Yes (Life-Threatening)
  Sender: FDA-Public Use
  Company Number: 20070308  /

PATIENT
  Sex: Female

DRUGS (1)
  1. VENOFER [Suspect]
     Indication: ANAEMIA
     Dosage: 300 MG INTRAVENOUS
     Route: 042
     Dates: start: 20071120, end: 20071120

REACTIONS (1)
  - ANAPHYLACTOID REACTION [None]
